FAERS Safety Report 18746151 (Version 1)
Quarter: 2021Q1

REPORT INFORMATION
  Report Type: Spontaneous
  Country: US (occurrence: US)
  Receive Date: 20210115
  Receipt Date: 20210115
  Transmission Date: 20210419
  Serious: Yes (Death, Other)
  Sender: FDA-Public Use
  Company Number: US-PFIZER INC-2021015264

PATIENT
  Age: 76 Year
  Sex: Male

DRUGS (10)
  1. DIGOXIN. [Suspect]
     Active Substance: DIGOXIN
     Dosage: UNK (INGST)
     Route: 048
  2. IBUPROFEN. [Suspect]
     Active Substance: IBUPROFEN
     Dosage: UNK (INGST)
     Route: 048
  3. ESCITALOPRAM [Suspect]
     Active Substance: ESCITALOPRAM OXALATE
     Dosage: UNK (INGST)
     Route: 048
  4. HYDROCHLOROTHIAZIDE. [Suspect]
     Active Substance: HYDROCHLOROTHIAZIDE
     Dosage: UNK (INGST)
     Route: 048
  5. GABAPENTIN. [Suspect]
     Active Substance: GABAPENTIN
     Dosage: UNK (INGST)
     Route: 048
  6. TIZANIDINE. [Suspect]
     Active Substance: TIZANIDINE
     Dosage: UNK (INGST)
     Route: 048
  7. BUTALBITAL, ACETAMINOPHEN, AND CAFFEINE [Suspect]
     Active Substance: ACETAMINOPHEN\BUTALBITAL\CAFFEINE
     Dosage: UNK (INGST)
     Route: 048
  8. HYPOCHLORITE [Suspect]
     Active Substance: SODIUM HYPOCHLORITE
     Dosage: UNK (INGST)
     Route: 048
  9. METOPROLOL. [Suspect]
     Active Substance: METOPROLOL
     Dosage: UNK (INGST) ER
     Route: 048
  10. ALPRAZOLAM. [Suspect]
     Active Substance: ALPRAZOLAM
     Dosage: UNK (INGST)
     Route: 048

REACTIONS (3)
  - Respiratory arrest [Fatal]
  - Completed suicide [Fatal]
  - Cardiac arrest [Fatal]

NARRATIVE: CASE EVENT DATE: 2019
